FAERS Safety Report 9692615 (Version 2)
Quarter: 2013Q4

REPORT INFORMATION
  Report Type: Spontaneous
  Country: GB (occurrence: GB)
  Receive Date: 20131118
  Receipt Date: 20131118
  Transmission Date: 20140711
  Serious: Yes (Other)
  Sender: FDA-Public Use
  Company Number: PHFR2013GB005516

PATIENT
  Age: 48 Year
  Sex: Female

DRUGS (3)
  1. CLOZARIL [Suspect]
     Indication: SCHIZOPHRENIA
     Dosage: 400 MG, UNK
     Route: 048
     Dates: start: 20080214
  2. SERTRALINE [Concomitant]
     Indication: DEPRESSION
     Dosage: 100 MG, UNK
     Route: 048
  3. DIAZEPAM [Concomitant]
     Indication: AGITATION
     Dosage: 10 MG, UNK
     Route: 048

REACTIONS (2)
  - Trigeminal neuralgia [Recovering/Resolving]
  - Pain [Recovering/Resolving]
